FAERS Safety Report 10352194 (Version 1)
Quarter: 2014Q3

REPORT INFORMATION
  Report Type: Other
  Country: US (occurrence: US)
  Receive Date: 20140730
  Receipt Date: 20140730
  Transmission Date: 20150326
  Serious: Yes (Other)
  Sender: FDA-Public Use
  Company Number: US-ENDO PHARMACEUTICALS INC-LETR20140002

PATIENT
  Age: 61 Year
  Sex: Female

DRUGS (1)
  1. LETROZOLE TABLETS 2.5MG [Suspect]
     Active Substance: LETROZOLE
     Indication: BREAST CANCER
     Dosage: UNKNOWN
     Route: 048
     Dates: start: 2007, end: 201108

REACTIONS (2)
  - Systemic sclerosis [Recovered/Resolved]
  - Raynaud^s phenomenon [Recovered/Resolved]

NARRATIVE: CASE EVENT DATE: 201108
